FAERS Safety Report 6463502-2 (Version None)
Quarter: 2009Q4

REPORT INFORMATION
  Report Type: 
  Country: None (occurrence: None)
  Receive Date: 20091201
  Receipt Date: 20091125
  Transmission Date: 20100525
  Serious: Yes (Other)
  Sender: FDA-Public Use
  Company Number: US-BIOGENIDEC-2009BI038629

PATIENT
  Age: 62 Year
  Sex: Male

DRUGS (7)
  1. TYSABRI [Suspect]
     Indication: MULTIPLE SCLEROSIS
     Route: 042
     Dates: start: 20071004
  2. WARFARIN SODIUM [Concomitant]
  3. AVAPRO [Concomitant]
  4. NEURONTIN [Concomitant]
  5. BACLOFEN [Concomitant]
  6. ANTARA (MICRONIZED) [Concomitant]
  7. METFORMIN HCL [Concomitant]

REACTIONS (1)
  - BLADDER CANCER [None]
